FAERS Safety Report 22228784 (Version 1)
Quarter: 2023Q2

REPORT INFORMATION
  Report Type: Spontaneous
  Country: RO (occurrence: RO)
  Receive Date: 20230419
  Receipt Date: 20230419
  Transmission Date: 20230722
  Serious: Yes (Other)
  Sender: FDA-Public Use
  Company Number: RO-BAXTER-2023BAX017411

PATIENT

DRUGS (5)
  1. DOXORUBICIN [Suspect]
     Active Substance: DOXORUBICIN
     Indication: Non-Hodgkin^s lymphoma
     Dosage: 6 ? 2 RCHOP THERAPY, 50MG/M2 ON DAY 1 ADMINISTERE
     Route: 042
  2. RITUXIMAB [Suspect]
     Active Substance: RITUXIMAB
     Indication: Non-Hodgkin^s lymphoma
     Dosage: 6 ? 2 RCHOP THERAPY, 375MG/M2 ADMINISTERED EVERY
     Route: 042
  3. VINCRISTINE [Suspect]
     Active Substance: VINCRISTINE
     Indication: Non-Hodgkin^s lymphoma
     Dosage: 6 ? 2 RCHOP THERAPY, 1.4 MG/M2 ADMINISTERED EVERY
     Route: 042
  4. PREDNISONE [Suspect]
     Active Substance: PREDNISONE
     Indication: Non-Hodgkin^s lymphoma
     Dosage: 6 ? 2 RCHOP THERAPY, 100 MG ON DAYS 1-5
     Route: 042
  5. CYCLOPHOSPHAMIDE [Suspect]
     Active Substance: CYCLOPHOSPHAMIDE
     Indication: Non-Hodgkin^s lymphoma
     Dosage: 6 ? 2 RCHOP THERAPY, 750 MG/M2 ADMINISTERED EVERY
     Route: 042

REACTIONS (3)
  - Ejection fraction decreased [Unknown]
  - Cardiotoxicity [Unknown]
  - Off label use [Unknown]
